FAERS Safety Report 16681466 (Version 1)
Quarter: 2019Q3

REPORT INFORMATION
  Report Type: Spontaneous
  Country: FR (occurrence: FR)
  Receive Date: 20190808
  Receipt Date: 20190808
  Transmission Date: 20191004
  Serious: Yes (Life-Threatening)
  Sender: FDA-Public Use
  Company Number: FR-ADIENNEP-2019AD000390

PATIENT
  Age: 11 Year
  Sex: Female
  Weight: 34 kg

DRUGS (2)
  1. LAROXYL 40 MG/ML, SOLUTION BUVABLE [Concomitant]
     Active Substance: AMITRIPTYLINE HYDROCHLORIDE
     Indication: SEDATION
     Dosage: 4 GTT DAILY
     Route: 048
     Dates: start: 201904, end: 20190718
  2. TEPADINA [Suspect]
     Active Substance: THIOTEPA
     Indication: PINEALOBLASTOMA
     Dosage: 240 MG DAILY
     Route: 042
     Dates: start: 20190625, end: 20190627

REACTIONS (8)
  - Rash [Recovered/Resolved]
  - Pyrexia [Recovering/Resolving]
  - Diarrhoea haemorrhagic [Recovered/Resolved]
  - Thrombocytopenia [Recovering/Resolving]
  - Acute hepatic failure [Recovered/Resolved]
  - Vomiting [Recovered/Resolved]
  - Ascites [Recovering/Resolving]
  - Hepatitis [Recovering/Resolving]

NARRATIVE: CASE EVENT DATE: 20190626
